FAERS Safety Report 5467505-6 (Version None)
Quarter: 2007Q3

REPORT INFORMATION
  Report Type: 
  Country: None (occurrence: None)
  Receive Date: 20070921
  Receipt Date: 20070910
  Transmission Date: 20080115
  Serious: Yes (Other)
  Sender: FDA-Public Use
  Company Number: 2007RL000402

PATIENT
  Age: 54 Year
  Sex: Male

DRUGS (2)
  1. LOVAZA [Suspect]
     Indication: DRUG USE FOR UNKNOWN INDICATION
     Dosage: 3 MG;QD;PO; 3 MG;QD;PO
     Route: 048
     Dates: start: 20070101, end: 20070101
  2. LOVAZA [Suspect]
     Indication: DRUG USE FOR UNKNOWN INDICATION
     Dosage: 3 MG;QD;PO; 3 MG;QD;PO
     Route: 048
     Dates: end: 20070101

REACTIONS (1)
  - DRUG SCREEN FALSE POSITIVE [None]
